FAERS Safety Report 5812386-1 (Version None)
Quarter: 2008Q3

REPORT INFORMATION
  Report Type: 
  Country: None (occurrence: None)
  Receive Date: 20080716
  Receipt Date: 20080707
  Transmission Date: 20090109
  Serious: Yes (Other)
  Sender: FDA-Public Use
  Company Number: US-PFIZER INC-2008056652

PATIENT
  Sex: Male
  Weight: 92.1 kg

DRUGS (5)
  1. CADUET [Suspect]
     Indication: BLOOD PRESSURE
     Dosage: TEXT:5/10
  2. CADUET [Suspect]
     Indication: BLOOD CHOLESTEROL
  3. FUROSEMIDE [Concomitant]
  4. DIAZEPAM [Concomitant]
  5. ACETYLSALICYLIC ACID SRT [Concomitant]

REACTIONS (3)
  - BREAST TENDERNESS [None]
  - ERYTHEMA [None]
  - HIP ARTHROPLASTY [None]
